FAERS Safety Report 5406639-9 (Version None)
Quarter: 2007Q3

REPORT INFORMATION
  Report Type: 
  Country: None (occurrence: None)
  Receive Date: 20070806
  Receipt Date: 20070725
  Transmission Date: 20080115
  Serious: Yes (Other)
  Sender: FDA-Public Use
  Company Number: US-PFIZER INC-2007062919

PATIENT
  Sex: Male
  Weight: 59 kg

DRUGS (2)
  1. CHANTIX [Suspect]
     Indication: SMOKING CESSATION THERAPY
     Dates: start: 20070724, end: 20070724
  2. PRILOSEC [Concomitant]

REACTIONS (7)
  - DISCOMFORT [None]
  - FEELING ABNORMAL [None]
  - FEELING OF RELAXATION [None]
  - HEADACHE [None]
  - HYPOACUSIS [None]
  - IRRITABILITY [None]
  - PARANOIA [None]
